FAERS Safety Report 7234284-1 (Version None)
Quarter: 2011Q1

REPORT INFORMATION
  Report Type: 
  Country: None (occurrence: None)
  Receive Date: 20110119
  Receipt Date: 20110111
  Transmission Date: 20110831
  Serious: Yes (Hospitalization)
  Sender: FDA-Public Use
  Company Number: BR-ROCHE-749650

PATIENT
  Sex: Female
  Weight: 80 kg

DRUGS (4)
  1. DEXCLORFENIRAMINA [Concomitant]
     Dates: start: 20101213
  2. DOCETAXEL [Suspect]
     Dosage: LAST DOSE PRIOR TO SAE: 16 DEC 2010. FORM: VAILS
     Route: 042
     Dates: start: 20100922
  3. BEVACIZUMAB [Suspect]
     Dosage: LAST DOSE PRIOR TO SAE: 16 DEC 2010. FORM: VAILS
     Route: 042
     Dates: start: 20100922
  4. MORPHINE [Concomitant]
     Dates: start: 20101116

REACTIONS (1)
  - PNEUMOTHORAX [None]
